FAERS Safety Report 8546375 (Version 4)
Quarter: 2012Q4

REPORT INFORMATION
  Report Type: 
  Country: IE (occurrence: IE)
  Receive Date: 20120504
  Receipt Date: 20120916
  Transmission Date: 20130627
  Serious: Yes (Hospitalization, Other)
  Sender: FDA-Public Use
  Company Number: PHFR2012IE002695

PATIENT
  Age: 31 Year
  Sex: Male

DRUGS (17)
  1. LYRICA [Concomitant]
     Dosage: 75 mg, at night
  2. ZIMOVANE [Concomitant]
     Dosage: 7.5 mg, at night
  3. MOVICOL [Concomitant]
     Dosage: 1-2 DF, BID
  4. FORTISIP [Concomitant]
     Dosage: 1 DF, TID
  5. SOLPADOL [Concomitant]
     Dosage: UNK UKN, UNK
  6. STEMETIL [Concomitant]
     Dosage: 5 mg, TID ar needed
  7. CLOZARIL [Suspect]
     Indication: SCHIZOPHRENIA
     Dosage: 600 mg, (200 mg mane and 400 mg nocte)
     Route: 048
     Dates: start: 20000117
  8. KWELLS [Concomitant]
     Route: 048
  9. EPILIM [Concomitant]
     Dosage: 1600 mg, at night
  10. COLPERMIN [Concomitant]
     Dosage: 1 DF, TID
  11. MOTILIUM [Concomitant]
     Dosage: 10 mg, TID
  12. KEPPRA [Concomitant]
     Dosage: 1000 mg, BID
  13. NEXIUM [Concomitant]
     Dosage: 400 mg, QD
  14. RANITIDINE [Concomitant]
     Dosage: 300 mg, at night
  15. MAXOLON [Concomitant]
     Dosage: 10 mg, TID
  16. TARGIN [Concomitant]
     Dosage: 15 mg, (10 mg/5mg) at night
  17. SCOPODERM TTS [Concomitant]
     Dosage: 1.5 mg, 72 hourly

REACTIONS (2)
  - Neoplasm malignant [Unknown]
  - Abdominal neoplasm [Unknown]
